FAERS Safety Report 15551733 (Version 2)
Quarter: 2018Q4

REPORT INFORMATION
  Report Type: Report from Study
  Country: None (occurrence: BR)
  Receive Date: 20181025
  Receipt Date: 20181026
  Transmission Date: 20190205
  Serious: Yes (Hospitalization, Other)
  Sender: FDA-Public Use
  Company Number: BR-ABBVIE-18K-020-2530249-00

PATIENT
  Age: 53 Year
  Sex: Female

DRUGS (1)
  1. HUMIRA [Suspect]
     Active Substance: ADALIMUMAB
     Indication: ANKYLOSING SPONDYLITIS
     Route: 058
     Dates: start: 20180406, end: 20180917

REACTIONS (8)
  - Abdominal pain [Unknown]
  - Dyspnoea [Unknown]
  - Peritoneal disorder [Unknown]
  - Intra-abdominal fluid collection [Unknown]
  - Diaphragmatic disorder [Unknown]
  - Ligament disorder [Unknown]
  - Fat tissue increased [Unknown]
  - Metastatic neoplasm [Not Recovered/Not Resolved]

NARRATIVE: CASE EVENT DATE: 2018
